FAERS Safety Report 8321960-2 (Version None)
Quarter: 2012Q2

REPORT INFORMATION
  Report Type: 
  Country: None (occurrence: None)
  Receive Date: 20120430
  Receipt Date: 20120425
  Transmission Date: 20120825
  Serious: Yes (Other)
  Sender: FDA-Public Use
  Company Number: US-ROCHE-1063035

PATIENT
  Age: 47 Year
  Sex: Male
  Weight: 127.12 kg

DRUGS (3)
  1. PEGASYS [Suspect]
     Indication: HEPATITIS C
  2. INCIVEK [Concomitant]
  3. RIBAVIRIN [Concomitant]
     Route: 048

REACTIONS (6)
  - MASS [None]
  - PORTAL HYPERTENSION [None]
  - OBESITY [None]
  - RENAL FAILURE [None]
  - PYREXIA [None]
  - HEPATIC STEATOSIS [None]
